FAERS Safety Report 6483495-1 (Version None)
Quarter: 2009Q4

REPORT INFORMATION
  Report Type: 
  Country: None (occurrence: None)
  Receive Date: 20091209
  Receipt Date: 20091204
  Transmission Date: 20100525
  Serious: Yes (Death)
  Sender: FDA-Public Use
  Company Number: US-GILEAD-2009-0025344

PATIENT
  Sex: Male

DRUGS (11)
  1. LETAIRIS [Suspect]
     Indication: PULMONARY ARTERIAL HYPERTENSION
     Route: 048
     Dates: start: 20080212
  2. OXYGEN [Concomitant]
  3. REMODULIN [Concomitant]
  4. COUMADIN [Concomitant]
  5. VIAGRA [Concomitant]
  6. LASIX [Concomitant]
  7. ALDACTONE [Concomitant]
  8. ALPRAZOLAM [Concomitant]
  9. PAXIL [Concomitant]
  10. AMBIEN [Concomitant]
  11. NEXIUM [Concomitant]

REACTIONS (1)
  - DEATH [None]
